FAERS Safety Report 21936740 (Version 3)
Quarter: 2023Q1

REPORT INFORMATION
  Report Type: Spontaneous
  Country: NL (occurrence: None)
  Receive Date: 20230201
  Receipt Date: 20230324
  Transmission Date: 20230418
  Serious: Yes (Death, Life-Threatening, Disabling, Other)
  Sender: FDA-Public Use
  Company Number: NL-Noden Pharma DAC-NOD202301-000002

PATIENT
  Age: 85 Year
  Sex: Female

DRUGS (34)
  1. ALISKIREN [Suspect]
     Active Substance: ALISKIREN
     Indication: Product used for unknown indication
  2. AMIODARONE [Suspect]
     Active Substance: AMIODARONE
     Indication: Atrial fibrillation
  3. DABIGATRAN [Suspect]
     Active Substance: DABIGATRAN
     Indication: Atrial fibrillation
  4. BISOPROLOL [Suspect]
     Active Substance: BISOPROLOL
     Indication: Product used for unknown indication
  5. TRANEXAMIC ACID [Suspect]
     Active Substance: TRANEXAMIC ACID
     Indication: Overdose
     Dosage: UNKNOWN
  6. TRANEXAMIC ACID [Suspect]
     Active Substance: TRANEXAMIC ACID
     Indication: Haemorrhage
  7. TRANEXAMIC ACID [Suspect]
     Active Substance: TRANEXAMIC ACID
     Indication: Coagulation time prolonged
  8. PROTAMINE [Suspect]
     Active Substance: PROTAMINE
     Indication: Overdose
     Dosage: UNKNOWN
  9. PROTAMINE [Suspect]
     Active Substance: PROTAMINE
     Indication: Coagulation time prolonged
  10. PROTAMINE [Suspect]
     Active Substance: PROTAMINE
     Indication: Haemorrhage
  11. VITAMIN K [Suspect]
     Active Substance: PHYTONADIONE
     Indication: Overdose
     Dosage: UNKNOWN
  12. VITAMIN K [Suspect]
     Active Substance: PHYTONADIONE
     Indication: Haemorrhage
  13. VITAMIN K [Suspect]
     Active Substance: PHYTONADIONE
     Indication: Coagulation time prolonged
  14. IDARUCIZUMAB [Suspect]
     Active Substance: IDARUCIZUMAB
     Indication: Overdose
     Dosage: UNKNOWN
  15. IDARUCIZUMAB [Suspect]
     Active Substance: IDARUCIZUMAB
     Indication: Haemorrhage
  16. IDARUCIZUMAB [Suspect]
     Active Substance: IDARUCIZUMAB
     Indication: Coagulation time prolonged
     Dosage: REPEAT ADMINISTRATION
  17. IDARUCIZUMAB [Suspect]
     Active Substance: IDARUCIZUMAB
  18. FUROSEMIDE [Concomitant]
     Active Substance: FUROSEMIDE
     Indication: Product used for unknown indication
  19. GENTAMICIN [Concomitant]
     Active Substance: GENTAMICIN
     Indication: Antibiotic therapy
  20. GENTAMICIN [Concomitant]
     Active Substance: GENTAMICIN
     Indication: Evidence based treatment
  21. TRIAMCINOLONE [Concomitant]
     Active Substance: TRIAMCINOLONE
     Indication: Rotator cuff syndrome
     Dosage: UNKNOWN
  22. CHOLECALCIFEROL [Concomitant]
     Active Substance: CHOLECALCIFEROL
     Indication: Product used for unknown indication
  23. ASCORBIC ACID [Concomitant]
     Active Substance: ASCORBIC ACID
     Indication: Product used for unknown indication
  24. ROPINIROLE [Concomitant]
     Active Substance: ROPINIROLE
     Indication: Product used for unknown indication
  25. IPRATROPIUM [Concomitant]
     Active Substance: IPRATROPIUM
     Indication: Product used for unknown indication
  26. ACETAMINOPHEN [Concomitant]
     Active Substance: ACETAMINOPHEN
     Indication: Product used for unknown indication
  27. EUTHYROX [Concomitant]
     Active Substance: LEVOTHYROXINE SODIUM
     Indication: Product used for unknown indication
  28. THIAMINE [Concomitant]
     Active Substance: THIAMINE
     Indication: Product used for unknown indication
  29. LORATADINE [Concomitant]
     Active Substance: LORATADINE
     Indication: Product used for unknown indication
  30. ALLOPURINOL [Concomitant]
     Active Substance: ALLOPURINOL
     Indication: Product used for unknown indication
  31. CEFUROXIME [Concomitant]
     Active Substance: CEFUROXIME
     Indication: Antibiotic therapy
  32. CEFUROXIME [Concomitant]
     Active Substance: CEFUROXIME
     Indication: Evidence based treatment
  33. BECLOMETASONE DIPROPIONATE 100UG DOSE, FORMOTEROL FUMARATE DIHYDRATE 6 [Concomitant]
     Indication: Antibiotic therapy
     Dosage: 100/60 MICROGRAM (MCG)
  34. HEPARIN CALCIUM [Concomitant]
     Active Substance: HEPARIN CALCIUM
     Indication: Atrial fibrillation
     Dosage: UNKNOWN

REACTIONS (17)
  - Multiple organ dysfunction syndrome [Fatal]
  - Sepsis [Not Recovered/Not Resolved]
  - Anticoagulation drug level above therapeutic [Unknown]
  - Shock [Unknown]
  - Rebound effect [Unknown]
  - Drug interaction [Unknown]
  - Pain [Unknown]
  - Acute kidney injury [Unknown]
  - Haemorrhage [Not Recovered/Not Resolved]
  - Coagulation time prolonged [Unknown]
  - Overdose [Unknown]
  - Haematoma [Unknown]
  - Drug ineffective [Unknown]
  - Haemarthrosis [Unknown]
  - Confusional state [Unknown]
  - Arthralgia [Unknown]
  - Abdominal pain [Unknown]
